FAERS Safety Report 5694103-1 (Version None)
Quarter: 2008Q2

REPORT INFORMATION
  Report Type: 
  Country: None (occurrence: None)
  Receive Date: 20080402
  Receipt Date: 20080318
  Transmission Date: 20081010
  Serious: Yes (Hospitalization)
  Sender: FDA-Public Use
  Company Number: 2008000624

PATIENT
  Sex: Male

DRUGS (4)
  1. TARCEVA [Suspect]
     Indication: NON-SMALL CELL LUNG CANCER METASTATIC
     Dosage: (150 MG, QD), ORAL; PREVIOUS 5-6 DAYS
     Route: 048
  2. DILANTIN [Concomitant]
  3. DECADRON [Concomitant]
  4. PROTONIX [Concomitant]

REACTIONS (3)
  - ABNORMAL FAECES [None]
  - ASPIRATION [None]
  - VOMITING [None]
